FAERS Safety Report 8103871 (Version 5)
Quarter: 2013Q1

REPORT INFORMATION
  Report Type: Spontaneous
  Country: JP (occurrence: JP)
  Receive Date: 20110824
  Receipt Date: 20130227
  Transmission Date: 20140127
  Serious: Yes (Death, Hospitalization)
  Sender: FDA-Public Use
  Company Number: JP-SANOFI-AVENTIS-2011SA053646

PATIENT
  Age: 82 Year
  Sex: Male
  Weight: 64 kg

DRUGS (9)
  1. TAXOTERE [Suspect]
     Indication: PROSTATE CANCER
     Dosage: FORM: INTRAVENOUS INFUSION
     Route: 042
     Dates: start: 20100804, end: 20100914
  2. TAXOTERE [Suspect]
     Indication: PROSTATE CANCER
     Route: 042
     Dates: start: 20100915, end: 20101116
  3. TAXOTERE [Suspect]
     Indication: PROSTATE CANCER
     Route: 042
     Dates: start: 20101117, end: 20110511
  4. TAXOTERE [Suspect]
     Indication: PROSTATE CANCER
     Route: 042
     Dates: start: 20110512, end: 20110809
  5. TAXOTERE [Suspect]
     Indication: PROSTATE CANCER
     Route: 042
     Dates: start: 20110810, end: 20110818
  6. PREDONINE [Concomitant]
     Indication: PROSTATE CANCER
     Dates: start: 20110804, end: 20110818
  7. CASODEX [Concomitant]
     Indication: ADJUVANT THERAPY
     Dates: start: 20070305
  8. GRANISETRON [Concomitant]
     Indication: PREMEDICATION
     Dosage: FREQUENCY: EVERY ADMINISTRATION OF COMPANY DRUG
  9. DEXAMETHASONE SODIUM PHOSPHATE [Concomitant]
     Indication: PREMEDICATION
     Dosage: FREQUENCY: EVERY ADMINISTRATION OF COMPANY DRUG

REACTIONS (8)
  - Pulmonary haemorrhage [Fatal]
  - Dyspnoea [Fatal]
  - Haemoptysis [Fatal]
  - Cardiac arrest [Fatal]
  - Respiratory failure [Fatal]
  - Pulmonary oedema [Fatal]
  - Neutropenia [Unknown]
  - Depressed level of consciousness [Unknown]
